FAERS Safety Report 8061875-0 (Version None)
Quarter: 2012Q1

REPORT INFORMATION
  Report Type: 
  Country: None (occurrence: None)
  Receive Date: 20120123
  Receipt Date: 20120110
  Transmission Date: 20120608
  Serious: Yes (Hospitalization)
  Sender: FDA-Public Use
  Company Number: DE-ELI_LILLY_AND_COMPANY-DE201201002906

PATIENT
  Age: 62 Year
  Sex: Male

DRUGS (8)
  1. CORTISONE ACETATE [Concomitant]
  2. FORTEO [Suspect]
     Indication: OSTEOPOROSIS
     Dosage: UNK, QD
     Route: 058
     Dates: start: 20111006
  3. DIGITOXIN TAB [Concomitant]
     Dosage: UNK
     Dates: end: 20111201
  4. CORTISONE ACETATE [Concomitant]
     Dosage: 5 MG, UNK
  5. INSULIN RAPID                      /00030501/ [Concomitant]
  6. CALCIUM CARBONATE [Concomitant]
  7. METFORMIN [Concomitant]
  8. LANTUS [Concomitant]

REACTIONS (2)
  - FATIGUE [None]
  - HOSPITALISATION [None]
